FAERS Safety Report 6029801-3 (Version None)
Quarter: 2009Q1

REPORT INFORMATION
  Report Type: 
  Country: None (occurrence: None)
  Receive Date: 20090107
  Receipt Date: 20090102
  Transmission Date: 20090719
  Serious: Yes (Disabling)
  Sender: FDA-Public Use
  Company Number: IE-ASTRAZENECA-2008GB02322

PATIENT
  Age: 24814 Day
  Sex: Female

DRUGS (5)
  1. CRESTOR [Suspect]
     Route: 048
     Dates: start: 20081202, end: 20081210
  2. LITHIUM [Concomitant]
     Indication: DEPRESSION
     Route: 048
  3. DULOXETINE [Concomitant]
     Indication: DEPRESSION
     Route: 048
  4. STELAZINE [Concomitant]
     Indication: DEPRESSION
     Route: 048
  5. STELAZINE [Concomitant]
     Indication: AGITATION
     Route: 048

REACTIONS (3)
  - DEPRESSION [None]
  - EMOTIONAL DISORDER [None]
  - SLEEP DISORDER [None]
